FAERS Safety Report 7041160-6 (Version None)
Quarter: 2010Q4

REPORT INFORMATION
  Report Type: 
  Country: None (occurrence: None)
  Receive Date: 20101013
  Receipt Date: 20101004
  Transmission Date: 20110411
  Serious: Yes (Other)
  Sender: FDA-Public Use
  Company Number: US-ASTRAZENECA-2010SE41221

PATIENT
  Sex: Female

DRUGS (8)
  1. SEROQUEL [Suspect]
     Indication: AFFECTIVE DISORDER
     Route: 048
  2. SEROQUEL [Suspect]
     Route: 048
  3. AMBIEN [Concomitant]
  4. CYMBALTA [Concomitant]
  5. LYRICA [Concomitant]
  6. DEPAKOTE [Concomitant]
  7. BUPROPION HCL [Concomitant]
  8. DIVALPROEX SODIUM [Concomitant]

REACTIONS (5)
  - DEPRESSION [None]
  - EATING DISORDER [None]
  - SEDATION [None]
  - STRESS [None]
  - SUICIDE ATTEMPT [None]
